FAERS Safety Report 9394566 (Version 1)
Quarter: 2013Q3

REPORT INFORMATION
  Report Type: Report from Study
  Country: DE (occurrence: DE)
  Receive Date: 20130711
  Receipt Date: 20130711
  Transmission Date: 20140515
  Serious: Yes (Other)
  Sender: FDA-Public Use
  Company Number: DE-JNJFOC-20130704798

PATIENT
  Age: 42 Year
  Sex: Female

DRUGS (5)
  1. SIMPONI [Suspect]
     Indication: RHEUMATOID ARTHRITIS
     Route: 058
     Dates: start: 20130318
  2. METHOTREXATE [Concomitant]
  3. VALETTE [Concomitant]
  4. VITAMIN D3 [Concomitant]
  5. BUSCOPAN [Concomitant]

REACTIONS (1)
  - Vaginal haemorrhage [Not Recovered/Not Resolved]
